FAERS Safety Report 7398148-5 (Version None)
Quarter: 2011Q2

REPORT INFORMATION
  Report Type: 
  Country: None (occurrence: None)
  Receive Date: 20110406
  Receipt Date: 20110324
  Transmission Date: 20111010
  Serious: Yes (Other)
  Sender: FDA-Public Use
  Company Number: PHHY2011US19094

PATIENT
  Sex: Male

DRUGS (8)
  1. MULTI-VITAMINS [Concomitant]
  2. XANAX [Concomitant]
     Dosage: 1 MG,
  3. LUVOX [Concomitant]
     Dosage: 200 MG,
  4. MIRALAX [Concomitant]
  5. TRAZODONE HCL [Concomitant]
     Dosage: 150 MG,
  6. RECLAST [Suspect]
     Indication: OSTEOPOROSIS
     Dosage: 5 MG, ONCE
     Route: 042
     Dates: start: 20110302
  7. AMITIZA [Concomitant]
     Dosage: 24 MG,
  8. VITAMIN D [Concomitant]

REACTIONS (11)
  - LYMPHOCYTE COUNT INCREASED [None]
  - CONFUSIONAL STATE [None]
  - PYREXIA [None]
  - LETHARGY [None]
  - ASTHENIA [None]
  - BLOOD GLUCOSE INCREASED [None]
  - PAIN [None]
  - BURNING SENSATION [None]
  - FEELING ABNORMAL [None]
  - BLOOD PRESSURE DECREASED [None]
  - ARTHRALGIA [None]
